FAERS Safety Report 6575460-0 (Version None)
Quarter: 2010Q1

REPORT INFORMATION
  Report Type: 
  Country: None (occurrence: None)
  Receive Date: 20100208
  Receipt Date: 20100208
  Transmission Date: 20100710
  Serious: Yes (Hospitalization, Other)
  Sender: FDA-Public Use
  Company Number: None

PATIENT
  Age: 13 Year
  Sex: Female
  Weight: 32.2054 kg

DRUGS (2)
  1. SULFASALAZINE [Suspect]
     Indication: COLITIS ULCERATIVE
     Dosage: TWO TABLETS TWICE DAILY PO
     Route: 048
     Dates: start: 20100126, end: 20100131
  2. CANASA [Suspect]
     Indication: COLITIS ULCERATIVE
     Dosage: ONE SUPPOSITORY AT BEDTIME RECTAL
     Route: 054
     Dates: start: 20100126, end: 20100131

REACTIONS (2)
  - ASTHENIA [None]
  - GAIT DISTURBANCE [None]
